FAERS Safety Report 15327315 (Version 1)
Quarter: 2018Q3

REPORT INFORMATION
  Report Type: Report from Study
  Country: CA (occurrence: CA)
  Receive Date: 20180828
  Receipt Date: 20180828
  Transmission Date: 20181010
  Serious: Yes (Other)
  Sender: FDA-Public Use
  Company Number: CA-BEH-2018094308

PATIENT
  Sex: Male

DRUGS (9)
  1. SANDOZ MYCOPHENOLATE MOFETIL [Concomitant]
  2. HIZENTRA [Suspect]
     Active Substance: HUMAN IMMUNOGLOBULIN G
     Indication: SECONDARY IMMUNODEFICIENCY
     Dosage: 10 G, QW
     Route: 058
  3. GELOMYRTOL [Concomitant]
     Dosage: UNK, PRN
     Route: 065
  4. NOVOTRIMEL [Concomitant]
  5. VORICONAZOLE. [Concomitant]
     Active Substance: VORICONAZOLE
  6. HIZENTRA [Suspect]
     Active Substance: HUMAN IMMUNOGLOBULIN G
     Indication: NEOPLASM MALIGNANT
  7. VALACYCLOVIR [Concomitant]
     Active Substance: VALACYCLOVIR HYDROCHLORIDE
  8. CARVEDILOL. [Concomitant]
     Active Substance: CARVEDILOL
  9. AMOXI?CLAV [Concomitant]
     Active Substance: AMOXICILLIN\CLAVULANATE POTASSIUM
     Dosage: UNK, PRN
     Route: 065

REACTIONS (2)
  - Renal disorder [Unknown]
  - Blood potassium increased [Unknown]
